FAERS Safety Report 25461561 (Version 1)
Quarter: 2025Q2

REPORT INFORMATION
  Report Type: Spontaneous
  Country: PL (occurrence: PL)
  Receive Date: 20250620
  Receipt Date: 20250620
  Transmission Date: 20250716
  Serious: Yes (Other)
  Sender: UCB
  Company Number: PL-UCBSA-2025035808

PATIENT

DRUGS (3)
  1. LEVETIRACETAM [Suspect]
     Active Substance: LEVETIRACETAM
     Indication: Seizure
  2. VALPROIC ACID [Concomitant]
     Active Substance: VALPROIC ACID
     Indication: Seizure
  3. STIRIPENTOL [Concomitant]
     Active Substance: STIRIPENTOL
     Indication: Seizure

REACTIONS (3)
  - Intellectual disability [Recovering/Resolving]
  - Seizure cluster [Recovering/Resolving]
  - Sleep disorder [Recovering/Resolving]
